FAERS Safety Report 15145052 (Version 2)
Quarter: 2018Q3

REPORT INFORMATION
  Report Type: Report from Study
  Country: US (occurrence: US)
  Receive Date: 20180713
  Receipt Date: 20180724
  Transmission Date: 20181010
  Serious: Yes (Hospitalization)
  Sender: FDA-Public Use
  Company Number: US-ACTELION-A-US2018-175169

PATIENT
  Age: 82 Year
  Sex: Male

DRUGS (12)
  1. OPSUMIT [Suspect]
     Active Substance: MACITENTAN
     Indication: PULMONARY ARTERIAL HYPERTENSION
     Dosage: 10 MG, QD
     Route: 048
     Dates: start: 20160827
  2. ESCITALOPRAM [Concomitant]
     Active Substance: ESCITALOPRAM OXALATE
  3. METOPROLOL. [Concomitant]
     Active Substance: METOPROLOL
  4. CALCIFEROL [Concomitant]
     Active Substance: ERGOCALCIFEROL
  5. FUROSEMIDE. [Concomitant]
     Active Substance: FUROSEMIDE
  6. METOLAZONE. [Concomitant]
     Active Substance: METOLAZONE
  7. ALLOPURINOL. [Concomitant]
     Active Substance: ALLOPURINOL
  8. FLURA?DROPS [Concomitant]
     Active Substance: SODIUM FLUORIDE
  9. HUMALOG [Concomitant]
     Active Substance: INSULIN LISPRO
  10. K TAB [Concomitant]
  11. PROSCAR [Concomitant]
     Active Substance: FINASTERIDE
  12. ASPIRIN 81 [Concomitant]
     Active Substance: ASPIRIN

REACTIONS (3)
  - Diabetes mellitus [Not Recovered/Not Resolved]
  - Renal disorder [Not Recovered/Not Resolved]
  - Hospitalisation [Unknown]
